FAERS Safety Report 9669681 (Version 5)
Quarter: 2015Q2

REPORT INFORMATION
  Report Type: Spontaneous
  Country: US (occurrence: US)
  Receive Date: 20131105
  Receipt Date: 20150413
  Transmission Date: 20150821
  Serious: Yes (Death, Hospitalization, Other)
  Sender: FDA-Public Use
  Company Number: US-009507513-1310USA014362

PATIENT
  Sex: Female
  Weight: 58.96 kg

DRUGS (4)
  1. FOSAMAX [Suspect]
     Active Substance: ALENDRONATE SODIUM
     Indication: OSTEOPOROSIS PROPHYLAXIS
     Dosage: 70 MG, WEEKLY
     Route: 048
     Dates: start: 2003, end: 2010
  2. CALCIUM (UNSPECIFIED) [Concomitant]
     Active Substance: CALCIUM
     Dosage: UNK
     Dates: start: 2003, end: 2010
  3. VITAMIN D [Concomitant]
     Active Substance: CHOLECALCIFEROL
     Dosage: 1000 IU, DAILY
     Dates: start: 2003, end: 2010
  4. FOSAMAX [Suspect]
     Active Substance: ALENDRONATE SODIUM
     Indication: OSTEOPOROSIS

REACTIONS (44)
  - Essential hypertension [Unknown]
  - Fall [Unknown]
  - Mitral valve incompetence [Unknown]
  - Aortic valve calcification [Unknown]
  - Fall [Unknown]
  - Radiotherapy [Unknown]
  - Hysterectomy [Unknown]
  - Pollakiuria [Unknown]
  - Hypercholesterolaemia [Unknown]
  - Muscle strain [Unknown]
  - Arteriosclerosis coronary artery [Unknown]
  - Coronary arterial stent insertion [Unknown]
  - Gout [Unknown]
  - Tachycardia [Unknown]
  - Blood 25-hydroxycholecalciferol decreased [Unknown]
  - Femur fracture [Unknown]
  - Open reduction of fracture [Unknown]
  - Knee arthroplasty [Unknown]
  - Insomnia [Unknown]
  - Anxiety [Unknown]
  - Anaemia [Unknown]
  - Breast mass [Unknown]
  - Asthenia [Unknown]
  - Oedema peripheral [Unknown]
  - Gastrooesophageal reflux disease [Unknown]
  - Osteoarthritis [Unknown]
  - Carotid artery stenosis [Unknown]
  - Abdominal hernia [Unknown]
  - Congestive cardiomyopathy [Unknown]
  - Breast lump removal [Unknown]
  - Device issue [Unknown]
  - Invasive ductal breast carcinoma [Unknown]
  - Thyroid disorder [Unknown]
  - Electrocardiogram abnormal [Unknown]
  - Cardiac failure congestive [Unknown]
  - Impaired healing [Unknown]
  - Urinary tract infection [Unknown]
  - Death [Fatal]
  - Pulmonary embolism [Unknown]
  - Aortic valve disease mixed [Unknown]
  - Carotid artery disease [Unknown]
  - Blood potassium decreased [Unknown]
  - Red blood cell sedimentation rate increased [Unknown]
  - Constipation [Unknown]

NARRATIVE: CASE EVENT DATE: 200312
